FAERS Safety Report 4648290-4 (Version None)
Quarter: 2005Q2

REPORT INFORMATION
  Report Type: 
  Country: None (occurrence: None)
  Receive Date: 20050331
  Receipt Date: 20050202
  Transmission Date: 20051028
  Serious: No
  Sender: FDA-Public Use
  Company Number: 05P-163-0289141-00

PATIENT
  Age: 56 Year
  Sex: Female
  Weight: 111 kg

DRUGS (6)
  1. HUMIRA [Suspect]
     Indication: RHEUMATOID ARTHRITIS
     Dosage: 40 MG, 1 IN 2 WK, SUBCUTANEOUS
     Route: 058
     Dates: start: 20041101
  2. SYNTHROID [Suspect]
     Indication: THYROID DISORDER
     Dosage: 125 MCG, 1 IN 1 D, PER ORAL
     Route: 048
     Dates: start: 20000101
  3. METHOTREXATE [Concomitant]
  4. FOLIC ACID [Concomitant]
  5. ETODOLAC [Concomitant]
  6. ACTINOL [Concomitant]

REACTIONS (1)
  - WEIGHT INCREASED [None]
